FAERS Safety Report 6214009-9 (Version None)
Quarter: 2009Q2

REPORT INFORMATION
  Report Type: 
  Country: None (occurrence: None)
  Receive Date: 20090601
  Receipt Date: 20090601
  Transmission Date: 20091009
  Serious: Yes (Hospitalization)
  Sender: FDA-Public Use
  Company Number: None

PATIENT
  Sex: Female
  Weight: 77.65 kg

DRUGS (1)
  1. OMNIPAQUE 70 [Suspect]
     Indication: COMPUTERISED TOMOGRAM
     Dosage: 90CC ONCE IV
     Route: 042
     Dates: start: 20090527, end: 20090527

REACTIONS (4)
  - BURNING SENSATION [None]
  - DYSPNOEA [None]
  - ERYTHEMA [None]
  - SNEEZING [None]
